FAERS Safety Report 6791316-2 (Version None)
Quarter: 2010Q2

REPORT INFORMATION
  Report Type: 
  Country: None (occurrence: None)
  Receive Date: 20100624
  Receipt Date: 20100615
  Transmission Date: 20101027
  Serious: Yes (Other)
  Sender: FDA-Public Use
  Company Number: FR-ROCHE-709775

PATIENT
  Sex: Female
  Weight: 60 kg

DRUGS (2)
  1. BEVACIZUMAB [Suspect]
     Dosage: DATE OF LAST DOSE PRIOR TO SAE: 27 APRIL 2010
     Route: 042
     Dates: start: 20100330
  2. DOXORUBICIN HCL [Suspect]
     Dosage: DATE OF LAST DOSE PRIOR TO SAE: 27 APRIL 2010, DRUG NAME: PDL (PEGYLATED LIPOSOMAL DOXORUBICIN)
     Route: 042
     Dates: start: 20100330, end: 20100611

REACTIONS (1)
  - IMPLANT SITE NECROSIS [None]
